FAERS Safety Report 24569348 (Version 2)
Quarter: 2024Q4

REPORT INFORMATION
  Report Type: Spontaneous
  Country: US (occurrence: US)
  Receive Date: 20241031
  Receipt Date: 20241218
  Transmission Date: 20250115
  Serious: Yes (Other)
  Sender: PFIZER
  Company Number: US-PFIZER INC-202400288807

PATIENT
  Age: 78 Year
  Sex: Female
  Weight: 94.331 kg

DRUGS (1)
  1. IBRANCE [Suspect]
     Active Substance: PALBOCICLIB
     Indication: Inflammatory carcinoma of the breast
     Dosage: 125MG TABLET, ONCE A DAY BY MOUTH FOR 21 DAYS AND THEN OFF FOR 7 DAYS
     Route: 048
     Dates: start: 202201

REACTIONS (8)
  - Cataract [Not Recovered/Not Resolved]
  - Dry skin [Not Recovered/Not Resolved]
  - Dry eye [Not Recovered/Not Resolved]
  - General physical health deterioration [Not Recovered/Not Resolved]
  - Mobility decreased [Not Recovered/Not Resolved]
  - Chills [Not Recovered/Not Resolved]
  - Swelling [Not Recovered/Not Resolved]
  - Cardiac disorder [Unknown]

NARRATIVE: CASE EVENT DATE: 20220701
